FAERS Safety Report 11055128 (Version 1)
Quarter: 2015Q2

REPORT INFORMATION
  Report Type: Spontaneous
  Country: US (occurrence: None)
  Receive Date: 20150421
  Receipt Date: 20150421
  Transmission Date: 20150821
  Serious: Yes (Other)
  Sender: FDA-Public Use
  Company Number: None

PATIENT
  Age: 71 Year
  Sex: Male
  Weight: 77.11 kg

DRUGS (8)
  1. AMLODIPINE-VALSARTAN [Suspect]
     Active Substance: AMLODIPINE\VALSARTAN
     Indication: BLOOD PRESSURE
     Route: 048
     Dates: start: 20150228, end: 20150415
  2. CRESTOR [Concomitant]
     Active Substance: ROSUVASTATIN CALCIUM
  3. BABY ASPIRIN [Concomitant]
     Active Substance: ASPIRIN
  4. VITAMIN B COMPLEX [Concomitant]
     Active Substance: CYANOCOBALAMIN\DEXPANTHENOL\NIACINAMIDE\PYRIDOXINE HYDROCHLORIDE\RIBOFLAVIN 5^-PHOSPHATE SODIUM\THIAMINE HYDROCHLORIDE\VITAMIN B COMPLEX
  5. CALCIUM [Concomitant]
     Active Substance: CALCIUM
  6. MULTI VITAMIN [Concomitant]
     Active Substance: VITAMINS
  7. EXFORGE [Concomitant]
     Active Substance: AMLODIPINE BESYLATE\VALSARTAN
  8. VITAMIN D [Concomitant]
     Active Substance: CHOLECALCIFEROL

REACTIONS (2)
  - Product substitution issue [None]
  - Tooth discolouration [None]

NARRATIVE: CASE EVENT DATE: 20150224
